FAERS Safety Report 8394926-4 (Version None)
Quarter: 2012Q2

REPORT INFORMATION
  Report Type: 
  Country: None (occurrence: None)
  Receive Date: 20120530
  Receipt Date: 20110722
  Transmission Date: 20120825
  Serious: No
  Sender: FDA-Public Use
  Company Number: US-GLAXOSMITHKLINE-A0938265A

PATIENT
  Age: 65 Year
  Sex: Female
  Weight: 73.6 kg

DRUGS (1)
  1. FLOLAN [Suspect]
     Indication: PULMONARY ARTERIAL HYPERTENSION
     Dosage: 52NGKM UNKNOWN
     Route: 065
     Dates: start: 20061113

REACTIONS (1)
  - ARTHRITIS [None]
